FAERS Safety Report 18502059 (Version 2)
Quarter: 2020Q4

REPORT INFORMATION
  Report Type: Spontaneous
  Country: CN (occurrence: CN)
  Receive Date: 20201113
  Receipt Date: 20201203
  Transmission Date: 20210114
  Serious: Yes (Hospitalization, Other)
  Sender: FDA-Public Use
  Company Number: CN-ASTRAZENECA-2020SF48385

PATIENT
  Age: 43 Year
  Sex: Female

DRUGS (2)
  1. AMINOPHYLLINE. [Concomitant]
     Active Substance: AMINOPHYLLINE
     Dosage: DOSE AND FREQUENCY UNKNOWN
     Route: 065
  2. SYMBICORT [Suspect]
     Active Substance: BUDESONIDE\FORMOTEROL FUMARATE DIHYDRATE
     Indication: ASTHMA
     Dosage: 320UG+9UG, ONCE IN THE MORNING AND IN THE EVENING
     Route: 055
     Dates: start: 2020

REACTIONS (4)
  - Suffocation feeling [Unknown]
  - Nasopharyngitis [Unknown]
  - Drug ineffective [Recovering/Resolving]
  - Wrong technique in device usage process [Unknown]
